FAERS Safety Report 17412180 (Version 1)
Quarter: 2020Q1

REPORT INFORMATION
  Report Type: Spontaneous
  Country: US (occurrence: US)
  Receive Date: 20200213
  Receipt Date: 20200213
  Transmission Date: 20200409
  Serious: Yes (Hospitalization)
  Sender: FDA-Public Use
  Company Number: US-QUAGEN PHARMA LLC-2020QUAOTH00033

PATIENT
  Age: 15 Year
  Sex: Female

DRUGS (1)
  1. CYPROHEPTADINE HYDROCHLORIDE ORAL SOLUTION [Suspect]
     Active Substance: CYPROHEPTADINE HYDROCHLORIDE

REACTIONS (9)
  - Delirium [Recovered/Resolved]
  - Mydriasis [Recovered/Resolved]
  - Sedation [Recovered/Resolved]
  - Dysarthria [Recovered/Resolved]
  - Abnormal behaviour [Recovered/Resolved]
  - Intentional overdose [Unknown]
  - Sinus tachycardia [Recovered/Resolved]
  - Agitation [Recovered/Resolved]
  - Prescription drug used without a prescription [Unknown]
